FAERS Safety Report 19753816 (Version 3)
Quarter: 2021Q3

REPORT INFORMATION
  Report Type: Report from Study
  Country: DE (occurrence: DE)
  Receive Date: 20210826
  Receipt Date: 20210913
  Transmission Date: 20211014
  Serious: Yes (Other)
  Sender: FDA-Public Use
  Company Number: DE-BRISTOL-MYERS SQUIBB COMPANY-BMS-2021-021809

PATIENT
  Age: 38 Year
  Sex: Male

DRUGS (6)
  1. NIVOLUMAB [Interacting]
     Active Substance: NIVOLUMAB
     Dosage: 480 MILLIGRAM, Q4WK
     Route: 042
     Dates: start: 20210505, end: 20210728
  2. IPILIMUMAB [Interacting]
     Active Substance: IPILIMUMAB
     Indication: RENAL CELL CARCINOMA
     Dosage: 108 MILLIGRAM, Q3WK
     Route: 042
     Dates: start: 20210114
  3. NIVOLUMAB [Suspect]
     Active Substance: NIVOLUMAB
     Indication: RENAL CELL CARCINOMA
     Dosage: 324 MILLIGRAM, Q3WK
     Route: 042
     Dates: start: 20210114, end: 20210318
  4. CANNABIDIOL [Interacting]
     Active Substance: CANNABIDIOL
     Indication: NEOPLASM
     Dosage: 3 DROP
     Route: 065
     Dates: start: 20201001
  5. NOVALGIN (METAMIZOLE SODIUM) [Concomitant]
     Active Substance: METAMIZOLE SODIUM
     Indication: NEOPLASM
     Dosage: 40 DROP
     Route: 065
     Dates: start: 20201201
  6. SALBUTAMOL [Concomitant]
     Active Substance: ALBUTEROL
     Indication: LUNG DISORDER
     Dosage: UNK
     Route: 065

REACTIONS (6)
  - Hyperthyroidism [Recovered/Resolved]
  - Drug interaction [Unknown]
  - Gastritis [Recovered/Resolved]
  - Fatigue [Not Recovered/Not Resolved]
  - Hypothyroidism [Not Recovered/Not Resolved]
  - Hepatic steatosis [Not Recovered/Not Resolved]

NARRATIVE: CASE EVENT DATE: 20210225
